FAERS Safety Report 21561950 (Version 2)
Quarter: 2022Q4

REPORT INFORMATION
  Report Type: Spontaneous
  Country: US (occurrence: US)
  Receive Date: 20221107
  Receipt Date: 20221115
  Transmission Date: 20230113
  Serious: Yes (Hospitalization)
  Sender: FDA-Public Use
  Company Number: US-PFIZER INC-PV202200097141

PATIENT
  Age: 61 Year
  Sex: Male

DRUGS (7)
  1. PRAZOSIN HYDROCHLORIDE [Suspect]
     Active Substance: PRAZOSIN HYDROCHLORIDE
     Dosage: UNK
  2. XELJANZ [Suspect]
     Active Substance: TOFACITINIB CITRATE
     Dosage: UNK
     Dates: start: 20190625, end: 20220826
  3. XELJANZ [Suspect]
     Active Substance: TOFACITINIB CITRATE
     Dosage: UNK
     Dates: start: 20220830, end: 20221103
  4. XELJANZ [Suspect]
     Active Substance: TOFACITINIB CITRATE
     Dosage: UNK
     Dates: start: 20221104
  5. BYSTOLIC [Suspect]
     Active Substance: NEBIVOLOL HYDROCHLORIDE
     Dosage: UNK
  6. OLMESARTAN [Suspect]
     Active Substance: OLMESARTAN
     Dosage: 20 MG, DAILY
  7. OLMESARTAN [Suspect]
     Active Substance: OLMESARTAN
     Dosage: 5 MG, DAILY

REACTIONS (2)
  - Hypotension [Unknown]
  - Product dose omission issue [Unknown]
